FAERS Safety Report 25484978 (Version 1)
Quarter: 2025Q2

REPORT INFORMATION
  Report Type: Spontaneous
  Country: FR (occurrence: FR)
  Receive Date: 20250626
  Receipt Date: 20250626
  Transmission Date: 20250716
  Serious: Yes (Hospitalization)
  Sender: RANBAXY
  Company Number: FR-SUN PHARMACEUTICAL INDUSTRIES LTD-2025RR-513266

PATIENT
  Age: 8 Day
  Sex: Male

DRUGS (5)
  1. ZOLPIDEM [Suspect]
     Active Substance: ZOLPIDEM TARTRATE
     Indication: Product used for unknown indication
     Route: 064
     Dates: end: 20231106
  2. ESOMEPRAZOLE [Suspect]
     Active Substance: ESOMEPRAZOLE
     Indication: Product used for unknown indication
     Route: 064
     Dates: end: 20231106
  3. SUBUTEX [Suspect]
     Active Substance: BUPRENORPHINE HYDROCHLORIDE
     Indication: Product used for unknown indication
     Route: 064
     Dates: end: 20231106
  4. ALPRAZOLAM [Suspect]
     Active Substance: ALPRAZOLAM
     Indication: Product used for unknown indication
     Route: 064
     Dates: end: 20231106
  5. MIRTAZAPINE [Suspect]
     Active Substance: MIRTAZAPINE
     Indication: Product used for unknown indication
     Route: 064
     Dates: end: 20231106

REACTIONS (3)
  - Foetal exposure timing unspecified [Recovered/Resolved]
  - Jaundice neonatal [Recovered/Resolved]
  - Drug withdrawal syndrome neonatal [Recovered/Resolved]

NARRATIVE: CASE EVENT DATE: 20231109
